FAERS Safety Report 4706146-2 (Version None)
Quarter: 2005Q2

REPORT INFORMATION
  Report Type: 
  Country: None (occurrence: None)
  Receive Date: 20050627
  Receipt Date: 20050412
  Transmission Date: 20051028
  Serious: Yes (Other)
  Sender: FDA-Public Use
  Company Number: 05-000269

PATIENT
  Age: 56 Year
  Sex: Female

DRUGS (10)
  1. LOESTRIN 1.5/30 [Suspect]
     Dates: start: 19961018
  2. PREMPRO [Suspect]
     Indication: HORMONE REPLACEMENT THERAPY
     Dates: start: 19970509, end: 20020705
  3. PARACETAMOL WITH CODEINE (CODEINE PHOSPHATE, PARACETAMOL) [Concomitant]
  4. ZOLOFT (SERTRALINE HYDROCHLORIDE), 100 MG [Concomitant]
  5. DICLOFENAC (DICLOFENAC), 75 MG [Concomitant]
  6. METHYLPREDNISOLONE (METHYLPREDNISOLONE), 4 MG [Concomitant]
  7. ULTRAM (TRAMADOL HYDROCHLORIDE), 50 MG [Concomitant]
  8. STAHIST TABS [Concomitant]
  9. ZITHROMAX Z-PACK (AZITHROMYCIN), 250 MG [Concomitant]
  10. LEVAQUIN [Concomitant]

REACTIONS (1)
  - BREAST CANCER [None]
